FAERS Safety Report 5882263-9 (Version None)
Quarter: 2008Q3

REPORT INFORMATION
  Report Type: 
  Country: None (occurrence: None)
  Receive Date: 20080912
  Receipt Date: 20080731
  Transmission Date: 20090109
  Serious: Yes (Other)
  Sender: FDA-Public Use
  Company Number: US-ABBOTT-08P-163-0467866-00

PATIENT
  Sex: Male
  Weight: 86.26 kg

DRUGS (2)
  1. HUMIRA [Suspect]
     Indication: CROHN'S DISEASE
     Route: 058
     Dates: start: 20070101
  2. IMODIUM [Concomitant]
     Indication: CROHN'S DISEASE
     Dosage: 1-2 TABS IN MORNING AS NEEDED
     Route: 048
     Dates: start: 20000101

REACTIONS (1)
  - FOLLICULITIS [None]
